FAERS Safety Report 4277456-0 (Version None)
Quarter: 2004Q1

REPORT INFORMATION
  Report Type: 
  Country: None (occurrence: None)
  Receive Date: 20040122
  Receipt Date: 20031219
  Transmission Date: 20041129
  Serious: Yes (Other)
  Sender: FDA-Public Use
  Company Number: FR-ROCHE-354494

PATIENT
  Age: 39 Year
  Sex: Female
  Weight: 56 kg

DRUGS (2)
  1. ROACCUTANE [Suspect]
     Indication: ACNE
     Route: 048
     Dates: start: 20031018, end: 20031115
  2. CONTRACEPTIVE [Concomitant]
     Indication: CONTRACEPTION
     Route: 050

REACTIONS (2)
  - HYPERAESTHESIA [None]
  - NERVOUS SYSTEM DISORDER [None]
